FAERS Safety Report 7556649-0 (Version None)
Quarter: 2011Q2

REPORT INFORMATION
  Report Type: 
  Country: None (occurrence: None)
  Receive Date: 20110620
  Receipt Date: 20110616
  Transmission Date: 20111010
  Serious: Yes (Other)
  Sender: FDA-Public Use
  Company Number: DE-SANOFI-AVENTIS-2011SA018171

PATIENT
  Age: 59 Year
  Sex: Male
  Weight: 76 kg

DRUGS (2)
  1. TRENTAL [Suspect]
     Indication: TINNITUS
     Route: 048
     Dates: start: 20101102, end: 20101107
  2. PREDNISOLONE [Suspect]
     Indication: TINNITUS
     Route: 048
     Dates: start: 20101102, end: 20101107

REACTIONS (2)
  - DEEP VEIN THROMBOSIS [None]
  - JOINT SWELLING [None]
